FAERS Safety Report 5381912-1 (Version None)
Quarter: 2007Q3

REPORT INFORMATION
  Report Type: 
  Country: None (occurrence: None)
  Receive Date: 20070709
  Receipt Date: 20070627
  Transmission Date: 20080115
  Serious: Yes (Other)
  Sender: FDA-Public Use
  Company Number: JP-ASTRAZENECA-2005AP03549

PATIENT
  Age: 67 Year
  Sex: Female

DRUGS (2)
  1. ARIMIDEX [Suspect]
     Indication: BREAST CANCER STAGE I
     Route: 048
     Dates: start: 20041001, end: 20050301
  2. RADIATION THERAPY [Suspect]
     Dates: start: 20040801, end: 20040901

REACTIONS (1)
  - CRYPTOGENIC ORGANISING PNEUMONIA [None]
